FAERS Safety Report 9328752 (Version 1)
Quarter: 2013Q2

REPORT INFORMATION
  Report Type: Spontaneous
  Country: US (occurrence: US)
  Receive Date: 20130604
  Receipt Date: 20130604
  Transmission Date: 20140414
  Serious: No
  Sender: FDA-Public Use
  Company Number: US-SANOFI-AVENTIS-2013SA012230

PATIENT
  Age: 74 Year
  Sex: Female

DRUGS (4)
  1. LANTUS SOLOSTAR [Suspect]
     Dosage: 10-20 UNITS
     Dates: start: 2012
  2. SOLOSTAR [Suspect]
     Dates: start: 2012
  3. METFORMIN [Concomitant]
  4. GLIPIZIDE [Concomitant]

REACTIONS (1)
  - Nasopharyngitis [Not Recovered/Not Resolved]
